FAERS Safety Report 7465234-0 (Version None)
Quarter: 2011Q2

REPORT INFORMATION
  Report Type: 
  Country: None (occurrence: None)
  Receive Date: 20110428
  Receipt Date: 20110203
  Transmission Date: 20111010
  Serious: Yes (Life-Threatening)
  Sender: FDA-Public Use
  Company Number: 2135225-2011-00013

PATIENT
  Age: 54 Year
  Sex: Male

DRUGS (1)
  1. POLIDOCANOL [Suspect]

REACTIONS (4)
  - PYREXIA [None]
  - ASTHENIA [None]
  - GENERAL PHYSICAL HEALTH DETERIORATION [None]
  - CARDIO-RESPIRATORY ARREST [None]
